FAERS Safety Report 21418750 (Version 1)
Quarter: 2022Q4

REPORT INFORMATION
  Report Type: Spontaneous
  Country: US (occurrence: None)
  Receive Date: 20221005
  Receipt Date: 20221005
  Transmission Date: 20230113
  Serious: Yes (Death)
  Sender: FDA-Public Use
  Company Number: None

PATIENT
  Age: 78 Year
  Sex: Female
  Weight: 71.99 kg

DRUGS (8)
  1. TABRECTA [Suspect]
     Active Substance: CAPMATINIB
     Indication: Lung carcinoma cell type unspecified stage 0
     Dosage: FREQUENCY : TWICE A DAY;?
     Route: 048
     Dates: start: 202203
  2. ACETAINOPHEN [Concomitant]
  3. ALPRAZOLAM [Concomitant]
  4. DEXAMETHASONE [Concomitant]
  5. MELATONIN [Suspect]
     Active Substance: MELATONIN
  6. PROAIR HFA [Concomitant]
  7. ROSUVASTATIN [Concomitant]
  8. VITAMIN D3 [Concomitant]
     Active Substance: CHOLECALCIFEROL

REACTIONS (1)
  - Death [None]
